FAERS Safety Report 7482280-1 (Version None)
Quarter: 2011Q2

REPORT INFORMATION
  Report Type: 
  Country: None (occurrence: None)
  Receive Date: 20110516
  Receipt Date: 20110514
  Transmission Date: 20111010
  Serious: Yes (Other)
  Sender: FDA-Public Use
  Company Number: US-PFIZER INC-2011103691

PATIENT
  Sex: Female
  Weight: 95.692 kg

DRUGS (2)
  1. CHANTIX [Suspect]
     Dosage: 1 MG, DAILY
     Route: 048
     Dates: start: 20110514
  2. CHANTIX [Suspect]
     Indication: SMOKING CESSATION THERAPY
     Dosage: 0.5 MG, UNK
     Route: 048
     Dates: start: 20110501, end: 20110513

REACTIONS (3)
  - NAUSEA [None]
  - MALAISE [None]
  - DYSPNOEA [None]
